FAERS Safety Report 15613898 (Version 1)
Quarter: 2018Q4

REPORT INFORMATION
  Report Type: Spontaneous
  Country: US (occurrence: US)
  Receive Date: 20181113
  Receipt Date: 20181113
  Transmission Date: 20190205
  Serious: Yes (Hospitalization, Other)
  Sender: FDA-Public Use
  Company Number: US-ELI_LILLY_AND_COMPANY-US201811003673

PATIENT
  Age: 81 Year
  Sex: Male
  Weight: 90 kg

DRUGS (1)
  1. TRULICITY [Suspect]
     Active Substance: DULAGLUTIDE
     Indication: TYPE 2 DIABETES MELLITUS
     Dosage: 0.75 MG, UNKNOWN
     Route: 058
     Dates: start: 2017, end: 201803

REACTIONS (6)
  - Weight decreased [Unknown]
  - Abdominal pain upper [Unknown]
  - Femur fracture [Unknown]
  - Drug ineffective [Unknown]
  - Peripheral vascular disorder [Unknown]
  - Fall [Unknown]

NARRATIVE: CASE EVENT DATE: 201802
